FAERS Safety Report 18020632 (Version 2)
Quarter: 2020Q4

REPORT INFORMATION
  Report Type: Spontaneous
  Country: IT (occurrence: IT)
  Receive Date: 20200714
  Receipt Date: 20201125
  Transmission Date: 20210113
  Serious: Yes (Life-Threatening, Other)
  Sender: FDA-Public Use
  Company Number: IT-PFIZER INC-2020267920

PATIENT
  Age: 49 Year
  Sex: Female

DRUGS (3)
  1. TRIATEC (RAMIPRIL) [Suspect]
     Active Substance: RAMIPRIL
     Dosage: 280 MG (TOTAL (5 MG X 4 BOXES))
     Route: 048
     Dates: start: 20200622, end: 20200622
  2. CLOZAPINE. [Suspect]
     Active Substance: CLOZAPINE
     Dosage: 33600 MG (TOTAL (100MG 2 8 TABLETS X12 BOXES))
     Route: 065
     Dates: start: 20200622, end: 20200622
  3. SERENASE [HALOPERIDOL] [Suspect]
     Active Substance: HALOPERIDOL
     Dosage: 4 MG (TOTAL (2 MG BOTTLE X 2 BOTTLES))
     Route: 048
     Dates: start: 20200622, end: 20200622

REACTIONS (3)
  - Poisoning [Recovering/Resolving]
  - Suicide attempt [Unknown]
  - Intentional overdose [Unknown]

NARRATIVE: CASE EVENT DATE: 20200622
